FAERS Safety Report 16678935 (Version 5)
Quarter: 2020Q4

REPORT INFORMATION
  Report Type: Spontaneous
  Country: US (occurrence: US)
  Receive Date: 20190807
  Receipt Date: 20201215
  Transmission Date: 20210113
  Serious: Yes (Hospitalization)
  Sender: FDA-Public Use
  Company Number: US-SA-2019SA183576

PATIENT

DRUGS (2)
  1. ORENCIA [Suspect]
     Active Substance: ABATACEPT
     Dosage: UNK, UNK
  2. KEVZARA [Suspect]
     Active Substance: SARILUMAB
     Indication: RHEUMATOID ARTHRITIS
     Dosage: 200 MG, QOW
     Route: 058
     Dates: start: 20190702

REACTIONS (12)
  - Blood triglycerides increased [Unknown]
  - Product dose omission issue [Unknown]
  - Injection site reaction [Unknown]
  - Urinary tract infection [Unknown]
  - Dehydration [Unknown]
  - Nausea [Unknown]
  - Cholecystectomy [Unknown]
  - Heart rate increased [Unknown]
  - Hypotension [Unknown]
  - Diarrhoea [Unknown]
  - Urinary tract infection [Recovering/Resolving]
  - Hepatic enzyme increased [Unknown]

NARRATIVE: CASE EVENT DATE: 2019
